FAERS Safety Report 8196628 (Version 2)
Quarter: 2013Q1

REPORT INFORMATION
  Report Type: Spontaneous
  Country: US (occurrence: US)
  Receive Date: 20111024
  Receipt Date: 20130130
  Transmission Date: 20140127
  Serious: Yes (Other)
  Sender: FDA-Public Use
  Company Number: US-ASTRAZENECA-2011SE63244

PATIENT
  Age: 52 Year
  Sex: Male

DRUGS (2)
  1. NEXIUM [Suspect]
     Route: 048
  2. SYMBICORT PMDI [Suspect]
     Route: 055

REACTIONS (5)
  - Gastric ulcer haemorrhage [Unknown]
  - Haemorrhage [Unknown]
  - Dyspepsia [Unknown]
  - Pain [Unknown]
  - Drug dose omission [Unknown]
